FAERS Safety Report 17731016 (Version 1)
Quarter: 2020Q2

REPORT INFORMATION
  Report Type: Spontaneous
  Country: CN (occurrence: CN)
  Receive Date: 20200430
  Receipt Date: 20200430
  Transmission Date: 20200714
  Serious: Yes (Other)
  Sender: FDA-Public Use
  Company Number: CN-ROCHE-2589216

PATIENT
  Age: 61 Year
  Sex: Female

DRUGS (12)
  1. BEVACIZUMAB. [Suspect]
     Active Substance: BEVACIZUMAB
     Indication: LUNG ADENOCARCINOMA STAGE IV
     Route: 042
     Dates: start: 20180906
  2. PEMETREXED. [Concomitant]
     Active Substance: PEMETREXED
     Indication: PERICARDIAL EFFUSION MALIGNANT
  3. CISPLATIN. [Concomitant]
     Active Substance: CISPLATIN
     Indication: METASTATIC NEOPLASM
  4. PEMETREXED. [Concomitant]
     Active Substance: PEMETREXED
     Indication: METASTATIC NEOPLASM
  5. BEVACIZUMAB. [Suspect]
     Active Substance: BEVACIZUMAB
     Indication: METASTATIC NEOPLASM
  6. CISPLATIN. [Concomitant]
     Active Substance: CISPLATIN
     Indication: LUNG ADENOCARCINOMA STAGE IV
     Route: 065
     Dates: start: 20180906
  7. PEMETREXED. [Concomitant]
     Active Substance: PEMETREXED
     Indication: MALIGNANT PLEURAL EFFUSION
  8. BEVACIZUMAB. [Suspect]
     Active Substance: BEVACIZUMAB
     Indication: MALIGNANT PLEURAL EFFUSION
  9. BEVACIZUMAB. [Suspect]
     Active Substance: BEVACIZUMAB
     Indication: PERICARDIAL EFFUSION MALIGNANT
  10. PEMETREXED. [Concomitant]
     Active Substance: PEMETREXED
     Indication: LUNG ADENOCARCINOMA STAGE IV
     Route: 042
     Dates: start: 20180906
  11. CISPLATIN. [Concomitant]
     Active Substance: CISPLATIN
     Indication: MALIGNANT PLEURAL EFFUSION
  12. CISPLATIN. [Concomitant]
     Active Substance: CISPLATIN
     Indication: PERICARDIAL EFFUSION MALIGNANT

REACTIONS (3)
  - Bone marrow failure [Unknown]
  - Hypertension [Unknown]
  - White blood cell count decreased [Unknown]
